FAERS Safety Report 9880536 (Version 4)
Quarter: 2014Q1

REPORT INFORMATION
  Report Type: Spontaneous
  Country: US (occurrence: US)
  Receive Date: 20140207
  Receipt Date: 20140331
  Transmission Date: 20141002
  Serious: Yes (Other)
  Sender: FDA-Public Use
  Company Number: US-JNJFOC-20131203782

PATIENT
  Sex: Male
  Weight: 99.34 kg

DRUGS (1)
  1. XARELTO [Suspect]
     Indication: DEEP VEIN THROMBOSIS
     Route: 048
     Dates: start: 201302, end: 20131202

REACTIONS (3)
  - Renal cyst [Unknown]
  - Hepatic steatosis [Unknown]
  - Gallbladder polyp [Unknown]
